FAERS Safety Report 21287503 (Version 3)
Quarter: 2022Q4

REPORT INFORMATION
  Report Type: Report from Study
  Country: US (occurrence: US)
  Receive Date: 20220902
  Receipt Date: 20221226
  Transmission Date: 20230113
  Serious: No
  Sender: FDA-Public Use
  Company Number: US-ABBVIE-22P-163-4483519-00

PATIENT
  Age: 57 Year
  Sex: Female
  Weight: 65 kg

DRUGS (8)
  1. HUMIRA [Suspect]
     Active Substance: ADALIMUMAB
     Indication: Rheumatoid arthritis
     Route: 058
     Dates: start: 2020, end: 2021
  2. RINVOQ [Suspect]
     Active Substance: UPADACITINIB
     Indication: Rheumatoid arthritis
     Dosage: 15 MILLIGRAM
     Route: 048
     Dates: start: 202201
  3. RINVOQ [Suspect]
     Active Substance: UPADACITINIB
     Indication: Rheumatoid arthritis
     Route: 048
  4. METHOTREXATE [Suspect]
     Active Substance: METHOTREXATE
     Indication: Rheumatoid arthritis
     Dosage: TIME INTERVAL: 0.125 WEEKS
     Route: 048
     Dates: start: 2008, end: 2018
  5. METHOTREXATE [Suspect]
     Active Substance: METHOTREXATE
     Indication: Rheumatoid arthritis
     Dosage: TIME INTERVAL: 0.125 WEEKS
     Route: 048
     Dates: start: 2020
  6. XELJANZ [Suspect]
     Active Substance: TOFACITINIB CITRATE
     Indication: Rheumatoid arthritis
     Route: 048
     Dates: start: 2021
  7. OMEPRAZOLE [Concomitant]
     Active Substance: OMEPRAZOLE
     Indication: Gastrooesophageal reflux disease
  8. FOLIC ACID [Concomitant]
     Active Substance: FOLIC ACID
     Indication: Prophylaxis

REACTIONS (14)
  - Bronchitis [Not Recovered/Not Resolved]
  - Rhinorrhoea [Not Recovered/Not Resolved]
  - Hepatic steatosis [Unknown]
  - Therapeutic product effect decreased [Recovered/Resolved]
  - Rheumatoid arthritis [Unknown]
  - Pneumonia [Not Recovered/Not Resolved]
  - Illness [Recovered/Resolved]
  - Headache [Unknown]
  - Abdominal distension [Unknown]
  - Abdominal pain upper [Unknown]
  - Back disorder [Unknown]
  - Lung disorder [Unknown]
  - Gastric disorder [Unknown]
  - Pain in extremity [Not Recovered/Not Resolved]

NARRATIVE: CASE EVENT DATE: 20220601
